FAERS Safety Report 8598807-2 (Version None)
Quarter: 2012Q3

REPORT INFORMATION
  Report Type: 
  Country: None (occurrence: None)
  Receive Date: 20120816
  Receipt Date: 20120814
  Transmission Date: 20120928
  Serious: No
  Sender: FDA-Public Use
  Company Number: US-GLAXOSMITHKLINE-A0989570A

PATIENT
  Age: 22 Year
  Sex: Female

DRUGS (2)
  1. SORIATANE [Suspect]
     Indication: PRODUCT USED FOR UNKNOWN INDICATION
     Route: 048
     Dates: end: 20100201
  2. BIRTH CONTROL PILLS [Concomitant]

REACTIONS (1)
  - MATERNAL EXPOSURE BEFORE PREGNANCY [None]
